FAERS Safety Report 10619504 (Version 1)
Quarter: 2014Q4

REPORT INFORMATION
  Report Type: Spontaneous
  Country: JP (occurrence: JP)
  Receive Date: 20141202
  Receipt Date: 20141202
  Transmission Date: 20150529
  Serious: Yes (Hospitalization)
  Sender: FDA-Public Use
  Company Number: PHHY2014JP153885

PATIENT
  Age: 50 Year
  Sex: Male

DRUGS (4)
  1. HYDROCORTISONE. [Suspect]
     Active Substance: HYDROCORTISONE
     Indication: CUSHING^S SYNDROME
     Dosage: 40 MG, QD
     Route: 065
  2. INSULIN [Concomitant]
     Active Substance: INSULIN NOS
     Indication: TYPE 2 DIABETES MELLITUS
     Route: 065
  3. DEXAMETHASONE. [Suspect]
     Active Substance: DEXAMETHASONE
     Indication: CUSHING^S SYNDROME
     Dosage: 0.5 MG, QD
     Route: 065
  4. HYDROCORTISONE. [Suspect]
     Active Substance: HYDROCORTISONE
     Dosage: 5 MG, QD
     Route: 065

REACTIONS (6)
  - Pneumonia cryptococcal [Recovered/Resolved]
  - Pulmonary mass [Recovered/Resolved]
  - Skin mass [Recovered/Resolved]
  - Erythema [Recovered/Resolved]
  - Abscess fungal [Recovered/Resolved]
  - Systemic candida [Recovered/Resolved]
